FAERS Safety Report 11039767 (Version 8)
Quarter: 2016Q2

REPORT INFORMATION
  Report Type: Report from Study
  Country: BR (occurrence: BR)
  Receive Date: 20150416
  Receipt Date: 20160526
  Transmission Date: 20160815
  Serious: Yes (Hospitalization, Other)
  Sender: FDA-Public Use
  Company Number: PHHY2015BR018894

PATIENT
  Age: 45 Year
  Sex: Female
  Weight: 81 kg

DRUGS (6)
  1. SOMAVERT [Concomitant]
     Active Substance: PEGVISOMANT
     Indication: ACROMEGALY
     Dosage: 1 DF, QD
     Route: 058
  2. SIMVASTATIN. [Concomitant]
     Active Substance: SIMVASTATIN
     Indication: BLOOD CHOLESTEROL ABNORMAL
     Dosage: 1 DF, QD (AT NIGHT)
     Route: 048
  3. PURAN [Concomitant]
     Active Substance: LEVOTHYROXINE SODIUM
     Indication: HYPOTHYROIDISM
     Dosage: 1 DF, QD (IN THE MORNING)
     Route: 048
     Dates: start: 2011
  4. ROSUVASTATIN. [Concomitant]
     Active Substance: ROSUVASTATIN
     Indication: BLOOD CHOLESTEROL ABNORMAL
     Route: 048
  5. SANDOSTATIN LAR DEPOT [Suspect]
     Active Substance: OCTREOTIDE ACETATE
     Indication: ACROMEGALY
     Dosage: 30 MG, QMO
     Route: 030
     Dates: start: 201004
  6. CO-DIOVAN [Concomitant]
     Active Substance: HYDROCHLOROTHIAZIDE\VALSARTAN
     Indication: BLOOD PRESSURE INCREASED
     Dosage: 1 DF, QD (IN THE MORNING)
     Route: 048
     Dates: start: 2011

REACTIONS (16)
  - Insomnia [Recovered/Resolved]
  - Back pain [Unknown]
  - Nervousness [Recovered/Resolved]
  - Foot deformity [Unknown]
  - Neoplasm [Unknown]
  - Blood growth hormone increased [Unknown]
  - Pain [Recovered/Resolved]
  - Spinal disorder [Recovering/Resolving]
  - Arthralgia [Unknown]
  - Insulin-like growth factor increased [Recovering/Resolving]
  - Neoplasm progression [Unknown]
  - Weight decreased [Unknown]
  - Injection site pain [Recovered/Resolved]
  - Fatigue [Unknown]
  - Thyroid mass [Not Recovered/Not Resolved]
  - Drug ineffective [Unknown]

NARRATIVE: CASE EVENT DATE: 201006
